FAERS Safety Report 13386567 (Version 2)
Quarter: 2017Q1

REPORT INFORMATION
  Report Type: Spontaneous
  Country: LB (occurrence: LB)
  Receive Date: 20170330
  Receipt Date: 20170331
  Transmission Date: 20170429
  Serious: Yes (Hospitalization)
  Sender: FDA-Public Use
  Company Number: LB-FRESENIUS KABI-FK201702525

PATIENT
  Age: 28 Year
  Sex: Female

DRUGS (1)
  1. PARACETAMOL (MANUFACTURER UNKNOWN) [Suspect]
     Active Substance: ACETAMINOPHEN
     Indication: HEADACHE
     Route: 065

REACTIONS (3)
  - Haematuria [Recovered/Resolved]
  - Renal ischaemia [Recovered/Resolved]
  - Renal papillary necrosis [Recovered/Resolved]
